FAERS Safety Report 5450274-3 (Version None)
Quarter: 2007Q3

REPORT INFORMATION
  Report Type: 
  Country: None (occurrence: None)
  Receive Date: 20070912
  Receipt Date: 20070901
  Transmission Date: 20080115
  Serious: Yes (Other)
  Sender: FDA-Public Use
  Company Number: US-PFIZER INC-2007010053

PATIENT
  Sex: Female
  Weight: 77.1 kg

DRUGS (7)
  1. LYRICA [Suspect]
     Indication: DIABETIC NEUROPATHY
     Dates: start: 20060424, end: 20060801
  2. NEURONTIN [Suspect]
     Indication: DIABETIC NEUROPATHY
  3. NEURONTIN [Suspect]
     Indication: NEURALGIA
  4. GABAPENTIN [Suspect]
     Indication: DIABETIC NEUROPATHY
  5. GABAPENTIN [Suspect]
  6. GABAPENTIN [Suspect]
  7. ALL OTHER THERAPEUTIC PRODUCTS [Concomitant]

REACTIONS (8)
  - BALANCE DISORDER [None]
  - DIZZINESS [None]
  - DYSSTASIA [None]
  - HYPOAESTHESIA [None]
  - NEURALGIA [None]
  - PAIN [None]
  - PAIN IN EXTREMITY [None]
  - PHARMACEUTICAL PRODUCT COMPLAINT [None]
